FAERS Safety Report 8736697 (Version 2)
Quarter: 2012Q4

REPORT INFORMATION
  Report Type: 
  Country: US (occurrence: US)
  Receive Date: 20120822
  Receipt Date: 20120831
  Transmission Date: 20130627
  Serious: No
  Sender: FDA-Public Use
  Company Number: US-PFIZER INC-2012204425

PATIENT
  Age: 67 Year
  Sex: Female
  Weight: 54.42 kg

DRUGS (8)
  1. LYRICA [Suspect]
     Indication: NEUROPATHY PERIPHERAL
     Dosage: 100 mg, 1x/day
     Route: 048
     Dates: end: 201207
  2. METFORMIN [Concomitant]
     Indication: DIABETES MELLITUS
     Dosage: 1000 mg two times a day (morning and night) and 500 mg at noon1000 UNK, UNK
  3. SPIRIVA [Concomitant]
     Indication: ASTHMA
     Dosage: UNK, 2x/day
  4. VENTOLIN HFA [Concomitant]
     Indication: ASTHMA
     Dosage: UNK, 2x/day
  5. FLUOXETINE [Concomitant]
     Indication: INSOMNIA
     Dosage: 20 mg, 1x/day
  6. ADVAIR DISKUS [Concomitant]
     Indication: ASTHMA
     Dosage: 250/50 mcg, UNK
  7. ADVAIR DISKUS [Concomitant]
     Indication: CHRONIC OBSTRUCTIVE PULMONARY DISEASE
  8. HYDROCODONE W/ACETAMINOPHEN [Concomitant]
     Indication: ARTHRITIS
     Dosage: 10/325 mg, as needed

REACTIONS (3)
  - Expired drug administered [Unknown]
  - Pain in extremity [Not Recovered/Not Resolved]
  - Middle insomnia [Not Recovered/Not Resolved]
